FAERS Safety Report 5408754-2 (Version None)
Quarter: 2007Q3

REPORT INFORMATION
  Report Type: 
  Country: None (occurrence: None)
  Receive Date: 20070808
  Receipt Date: 20070801
  Transmission Date: 20080115
  Serious: Yes (Death, Hospitalization)
  Sender: FDA-Public Use
  Company Number: B0482270A

PATIENT
  Age: 74 Year
  Sex: Female
  Weight: 70 kg

DRUGS (11)
  1. ARIXTRA [Suspect]
     Indication: DEEP VEIN THROMBOSIS
     Dosage: 7.5MG PER DAY
     Route: 058
     Dates: start: 20070419, end: 20070424
  2. MORPHINE [Concomitant]
  3. TANAKAN [Concomitant]
  4. INDAPAMIDE [Concomitant]
     Dosage: 1.5MG PER DAY
     Route: 048
     Dates: end: 20070425
  5. PLAVIX [Concomitant]
     Dosage: 75MG PER DAY
     Route: 048
     Dates: start: 20070302, end: 20070419
  6. HYTACAND [Concomitant]
     Route: 048
     Dates: end: 20070425
  7. HEXAQUINE [Concomitant]
     Route: 048
     Dates: end: 20070425
  8. AMLODIPINE [Concomitant]
     Route: 048
     Dates: end: 20070425
  9. DOLIPRANE [Concomitant]
  10. RABEPRAZOLE SODIUM [Concomitant]
     Route: 048
     Dates: end: 20070425
  11. HAVLANE [Concomitant]
     Route: 048
     Dates: end: 20070425

REACTIONS (4)
  - ANAEMIA [None]
  - HAEMATOMA [None]
  - MUSCLE HAEMORRHAGE [None]
  - PULMONARY EMBOLISM [None]
